FAERS Safety Report 7980953-5 (Version None)
Quarter: 2011Q4

REPORT INFORMATION
  Report Type: 
  Country: None (occurrence: None)
  Receive Date: 20111215
  Receipt Date: 20111209
  Transmission Date: 20120403
  Serious: Yes (Other)
  Sender: FDA-Public Use
  Company Number: US-BIOGENIDEC-2011BI046681

PATIENT
  Age: 62 Year
  Sex: Female

DRUGS (3)
  1. AVONEX [Suspect]
     Indication: MULTIPLE SCLEROSIS
     Route: 030
  2. AVONEX [Suspect]
     Route: 030
     Dates: start: 20010301, end: 20080101
  3. AVONEX [Suspect]
     Route: 030

REACTIONS (6)
  - HYSTERECTOMY [None]
  - MUSCLE SPASMS [None]
  - MEMORY IMPAIRMENT [None]
  - EYELID PTOSIS [None]
  - DIARRHOEA [None]
  - INJECTION SITE HAEMORRHAGE [None]
